FAERS Safety Report 4950998-8 (Version None)
Quarter: 2006Q1

REPORT INFORMATION
  Report Type: 
  Country: None (occurrence: None)
  Receive Date: 20060315
  Receipt Date: 20060223
  Transmission Date: 20060701
  Serious: Yes (Life-Threatening, Hospitalization)
  Sender: FDA-Public Use
  Company Number: DE200602004414

PATIENT
  Age: 80 Year
  Sex: Female

DRUGS (11)
  1. CYMBALTA [Suspect]
     Indication: DEPRESSION
     Dosage: ORAL
     Route: 048
     Dates: start: 20051229
  2. MIRTAZAPINE [Concomitant]
  3. ACE INHIBITOR NOS [Concomitant]
  4. ANTI-LIPIDE (CLOFIBRATE, INOSITOL NICOTINATE) [Concomitant]
  5. LORAZEPAM [Concomitant]
  6. DELIX PLUS (HYDROCHLOROTHIAZIDE, RAMIPRIL) [Concomitant]
  7. DELIX 1, 5 (RAMIPRIL) [Concomitant]
  8. RANITIDINE [Concomitant]
  9. SANDOCAL (CALCIUM CARBONATE, COLECALCIFEROL, SODIUM) [Concomitant]
  10. DIPYRONE TAB [Concomitant]
  11. DUROGESIC SMAT/DEN (FENTANYL) [Concomitant]

REACTIONS (4)
  - HYPERTENSIVE CRISIS [None]
  - LEFT VENTRICULAR FAILURE [None]
  - OXYGEN SATURATION DECREASED [None]
  - SINUS TACHYCARDIA [None]
